FAERS Safety Report 5517033-4 (Version None)
Quarter: 2007Q4

REPORT INFORMATION
  Report Type: 
  Country: None (occurrence: None)
  Receive Date: 20071114
  Receipt Date: 20070711
  Transmission Date: 20080405
  Serious: No
  Sender: FDA-Public Use
  Company Number: A0662772A

PATIENT
  Age: 54 Year
  Sex: Female

DRUGS (1)
  1. COMMIT [Suspect]
     Dates: end: 20070708

REACTIONS (4)
  - DIARRHOEA [None]
  - HAEMORRHOIDS [None]
  - MALAISE [None]
  - STOMACH DISCOMFORT [None]
